FAERS Safety Report 8538895-2 (Version None)
Quarter: 2012Q3

REPORT INFORMATION
  Report Type: 
  Country: None (occurrence: None)
  Receive Date: 20120716
  Receipt Date: 20120704
  Transmission Date: 20120928
  Serious: Yes (Other)
  Sender: FDA-Public Use
  Company Number: DSA_58417_2012

PATIENT
  Age: 50 Year
  Sex: Female

DRUGS (3)
  1. DOCETAXEL [Suspect]
     Indication: OESOPHAGEAL CARCINOMA
     Dosage: 70 MG/M2, (EVERY CYCLE), (REDUCED BY 20%)
  2. FLUOROURACIL [Suspect]
     Indication: OESOPHAGEAL CARCINOMA
     Dosage: 1700 MG/M3, (REDUCED BY 20%)
  3. CISPLATIN [Suspect]
     Indication: OESOPHAGEAL CARCINOMA
     Dosage: 70 MG/M2 (EVERY CYCLE), (REDUCED BY 20%)

REACTIONS (5)
  - LEUKOPENIA [None]
  - NEUTROPENIA [None]
  - DECREASED APPETITE [None]
  - THROMBOCYTOPENIA [None]
  - DIARRHOEA [None]
